FAERS Safety Report 8530404-7 (Version None)
Quarter: 2012Q3

REPORT INFORMATION
  Report Type: 
  Country: None (occurrence: None)
  Receive Date: 20120723
  Receipt Date: 20120709
  Transmission Date: 20120928
  Serious: Yes (Other)
  Sender: FDA-Public Use
  Company Number: BR-PFIZER INC-2012164927

PATIENT
  Age: 28 Year
  Sex: Female

DRUGS (6)
  1. CYMBALTA [Suspect]
     Indication: PAIN
     Dosage: ONE CAPSULE DAILY
     Dates: start: 20110101
  2. TOPAMAX [Concomitant]
     Indication: PAIN
     Dosage: ONE CAPSULE, THREE TIMES A DAY
     Dates: start: 20090101
  3. TRAMADOL HYDROCHLORIDE [Suspect]
     Dosage: UNK
     Route: 048
     Dates: end: 20120501
  4. INTERFERON BETA [Suspect]
     Indication: PAIN
     Dosage: THREE TIMES PER WEEK
  5. LYRICA [Suspect]
     Indication: MULTIPLE SCLEROSIS
     Dosage: 75 MG, 3X/DAY
     Route: 048
     Dates: start: 20110101
  6. LYRICA [Suspect]
     Dosage: 150 MG, 3X/DAY

REACTIONS (14)
  - MUSCLE SPASMS [None]
  - FATIGUE [None]
  - SOCIAL AVOIDANT BEHAVIOUR [None]
  - PAIN [None]
  - SOMNOLENCE [None]
  - DAYDREAMING [None]
  - ARTHROPATHY [None]
  - SPINAL DISORDER [None]
  - INFLUENZA [None]
  - GAIT DISTURBANCE [None]
  - GENERAL PHYSICAL CONDITION ABNORMAL [None]
  - DRUG INEFFECTIVE [None]
  - INSOMNIA [None]
  - DRUG DEPENDENCE [None]
